FAERS Safety Report 13122412 (Version 2)
Quarter: 2017Q1

REPORT INFORMATION
  Report Type: Spontaneous
  Country: US (occurrence: US)
  Receive Date: 20170117
  Receipt Date: 20170324
  Transmission Date: 20170428
  Serious: Yes (Other)
  Sender: FDA-Public Use
  Company Number: US-BAYER-2017-008718

PATIENT
  Age: 34 Year
  Sex: Female
  Weight: 125.62 kg

DRUGS (7)
  1. PROVERA [Concomitant]
     Active Substance: MEDROXYPROGESTERONE ACETATE
     Dosage: 1 DF, QD
     Route: 048
     Dates: start: 20170112
  2. VYVANSE [Concomitant]
     Active Substance: LISDEXAMFETAMINE DIMESYLATE
     Dosage: 1 DF, QD IN THE MORNING
     Route: 048
  3. TRAMADOL. [Concomitant]
     Active Substance: TRAMADOL
     Dosage: 1 DF, QOD
     Route: 048
  4. MIRENA [Suspect]
     Active Substance: LEVONORGESTREL
     Indication: MENORRHAGIA
     Dosage: 20 MCG/24HR, CONT
     Route: 015
     Dates: start: 20170201
  5. FLAGYL [Concomitant]
     Active Substance: METRONIDAZOLE\METRONIDAZOLE HYDROCHLORIDE
     Dosage: 1 DF, BID
     Route: 048
  6. MIRENA [Suspect]
     Active Substance: LEVONORGESTREL
     Indication: CONTRACEPTION
     Dosage: 20 MCG/24HR, CONT
     Route: 015
     Dates: start: 20161227, end: 20170112
  7. METROGEL [Concomitant]
     Active Substance: METRONIDAZOLE
     Dosage: 1 APPLICATORFUL BY VAGINAL ROUTE EVERY DAY AT BEDTIME
     Route: 067

REACTIONS (3)
  - Device dislocation [None]
  - Abdominal pain lower [None]
  - Procedural pain [None]

NARRATIVE: CASE EVENT DATE: 20170201
